FAERS Safety Report 6293725-7 (Version None)
Quarter: 2009Q3

REPORT INFORMATION
  Report Type: 
  Country: None (occurrence: None)
  Receive Date: 20090803
  Receipt Date: 20090728
  Transmission Date: 20100115
  Serious: Yes (Other)
  Sender: FDA-Public Use
  Company Number: US-BAYER-200928271NA

PATIENT
  Age: 32 Year
  Sex: Female

DRUGS (1)
  1. MIRENA [Suspect]
     Indication: DRUG USE FOR UNKNOWN INDICATION
     Dosage: CONTINUOUS
     Route: 015
     Dates: start: 20081001, end: 20090720

REACTIONS (3)
  - ANTEPARTUM HAEMORRHAGE [None]
  - BACK PAIN [None]
  - ECTOPIC PREGNANCY WITH INTRAUTERINE DEVICE [None]
